FAERS Safety Report 20264010 (Version 1)
Quarter: 2021Q4

REPORT INFORMATION
  Report Type: Spontaneous
  Country: US (occurrence: None)
  Receive Date: 20211230
  Receipt Date: 20211230
  Transmission Date: 20220303
  Serious: Yes (Hospitalization, Disabling, Other)
  Sender: FDA-Public Use
  Company Number: None

PATIENT
  Age: 28 Year
  Sex: Male
  Weight: 90 kg

DRUGS (3)
  1. LYRICA [Suspect]
     Active Substance: PREGABALIN
     Indication: Anxiety
     Route: 048
  2. LYRICA [Suspect]
     Active Substance: PREGABALIN
     Indication: Depression
  3. LYRICA [Suspect]
     Active Substance: PREGABALIN
     Indication: Seizure prophylaxis

REACTIONS (8)
  - Insomnia [None]
  - Tinnitus [None]
  - Muscle atrophy [None]
  - Pain [None]
  - Neuropathy peripheral [None]
  - Suicidal ideation [None]
  - Depressed level of consciousness [None]
  - Impaired work ability [None]

NARRATIVE: CASE EVENT DATE: 20210130
